FAERS Safety Report 9908676 (Version 2)
Quarter: 2014Q2

REPORT INFORMATION
  Report Type: Spontaneous
  Country: FR (occurrence: FR)
  Receive Date: 20140219
  Receipt Date: 20140527
  Transmission Date: 20141212
  Serious: Yes (Hospitalization)
  Sender: FDA-Public Use
  Company Number: FR-ASTRAZENECA-2014SE10130

PATIENT
  Age: 868 Month
  Sex: Female

DRUGS (8)
  1. INEXIUM [Suspect]
     Route: 048
     Dates: start: 2013, end: 2014
  2. DIFFU K [Suspect]
     Indication: MINERAL SUPPLEMENTATION
     Route: 048
     Dates: start: 2005
  3. REVATIO [Concomitant]
     Indication: PULMONARY ARTERIAL HYPERTENSION
     Route: 048
     Dates: start: 2007
  4. VOLIBRIS [Concomitant]
     Indication: PULMONARY ARTERIAL HYPERTENSION
     Route: 048
     Dates: start: 2010
  5. CACIT [Concomitant]
     Indication: MINERAL SUPPLEMENTATION
     Route: 048
     Dates: start: 2009
  6. LASILIX [Concomitant]
     Indication: HYPERTENSION
     Route: 048
     Dates: start: 2004
  7. PREVISCAN [Concomitant]
     Indication: PULMONARY ARTERIAL HYPERTENSION
     Route: 048
     Dates: start: 2004
  8. LEVOTHYROX [Concomitant]
     Indication: THYROID DISORDER
     Route: 048
     Dates: start: 2004

REACTIONS (1)
  - Neutropenia [Recovered/Resolved]
